FAERS Safety Report 17215777 (Version 2)
Quarter: 2020Q1

REPORT INFORMATION
  Report Type: Report from Study
  Country: IT (occurrence: IT)
  Receive Date: 20191230
  Receipt Date: 20200214
  Transmission Date: 20200409
  Serious: Yes (Other)
  Sender: FDA-Public Use
  Company Number: IT-MYLANLABS-2019M1129380

PATIENT
  Age: 59 Year
  Sex: Male

DRUGS (2)
  1. MUSCORIL [Concomitant]
     Active Substance: THIOCOLCHICOSIDE
     Dosage: UNK
  2. IBUPROFEN. [Suspect]
     Active Substance: IBUPROFEN
     Indication: MALAISE
     Dosage: 200 MILLIGRAM, QD
     Route: 048
     Dates: start: 20190715, end: 20190718

REACTIONS (4)
  - Angioedema [Recovering/Resolving]
  - Erythema [Recovering/Resolving]
  - Pruritus [Recovering/Resolving]
  - Drug hypersensitivity [Recovering/Resolving]

NARRATIVE: CASE EVENT DATE: 20190718
